FAERS Safety Report 5358802-3 (Version None)
Quarter: 2007Q2

REPORT INFORMATION
  Report Type: 
  Country: None (occurrence: None)
  Receive Date: 20070615
  Receipt Date: 20070604
  Transmission Date: 20071010
  Serious: Yes (Hospitalization)
  Sender: FDA-Public Use
  Company Number: FR-AMGEN-US228964

PATIENT
  Sex: Female

DRUGS (4)
  1. ENBREL [Suspect]
     Indication: DRUG USE FOR UNKNOWN INDICATION
     Dosage: LYOPHILIZED / 25 MG TWICE WEEKLY
     Route: 058
     Dates: start: 20060201, end: 20070501
  2. ENBREL [Suspect]
     Dosage: PREFILLED SYRINGE / 25 MG TWICE WEEKLY
     Route: 058
     Dates: start: 20070506
  3. ENBREL [Suspect]
     Dosage: PREFILLED SYRINGE / 25 MG TWICE WEEKLY
     Route: 058
     Dates: start: 20070501
  4. METHOTREXATE [Concomitant]
     Dosage: UNKNOWN
     Route: 048

REACTIONS (3)
  - ARTHRITIS INFECTIVE [None]
  - INJECTION SITE PAIN [None]
  - URINARY TRACT INFECTION [None]
